FAERS Safety Report 6451600-9 (Version None)
Quarter: 2009Q4

REPORT INFORMATION
  Report Type: 
  Country: None (occurrence: None)
  Receive Date: 20091123
  Receipt Date: 20091109
  Transmission Date: 20100525
  Serious: Yes (Other)
  Sender: FDA-Public Use
  Company Number: PHHY2009JP50945

PATIENT
  Sex: Male
  Weight: 3.1 kg

DRUGS (8)
  1. CYCLOSPORINE [Suspect]
     Indication: PUSTULAR PSORIASIS
     Dosage: MATERNAL DOSE:125 MG DAILY
     Route: 064
  2. CYCLOSPORINE [Suspect]
     Dosage: MATERNAL DOSE:225 MG DAILY
     Route: 064
  3. CYCLOSPORINE [Suspect]
     Dosage: MATERNAL DOSE:275 MG DAILY
     Route: 064
  4. CYCLOSPORINE [Suspect]
     Dosage: MATERNAL DOSE:225 MG DAILY
     Route: 064
  5. PREDNISOLONE [Concomitant]
     Indication: PUSTULAR PSORIASIS
     Dosage: MATERNAL DOSE:30 MG DAILY
     Route: 064
  6. PREDNISOLONE [Concomitant]
     Dosage: MATERNAL DOSE:50 MG DAILY
     Route: 064
  7. PREDNISOLONE [Concomitant]
     Dosage: MATERNAL DOSE:35 MG DAILY
     Route: 064
  8. PREDNISOLONE [Concomitant]
     Dosage: MATERNAL DOSE:10 MG DAILY
     Route: 064

REACTIONS (2)
  - DRUG EXPOSURE DURING PREGNANCY [None]
  - FOETAL GROWTH RETARDATION [None]
